FAERS Safety Report 9998322 (Version 3)
Quarter: 2014Q2

REPORT INFORMATION
  Report Type: Report from Study
  Country: US (occurrence: US)
  Receive Date: 20140312
  Receipt Date: 20140417
  Transmission Date: 20141212
  Serious: No
  Sender: FDA-Public Use
  Company Number: US-ROCHE-1316282

PATIENT
  Age: 34 Year
  Sex: Female
  Weight: 68.1 kg

DRUGS (4)
  1. NUTROPIN AQ [Suspect]
     Indication: HYPOPITUITARISM
     Route: 058
     Dates: start: 201206
  2. NUTROPIN AQ [Suspect]
     Indication: GROWTH HORMONE DEFICIENCY
  3. LEVOTHYROXINE [Concomitant]
     Indication: HYPOTHYROIDISM
     Route: 048
     Dates: start: 20130311
  4. CORTEF [Concomitant]
     Dosage: 10 MG IN MORNING AND 7.5MG IN EVENING
     Route: 048
     Dates: start: 20130311, end: 20140311

REACTIONS (2)
  - Blood count abnormal [Unknown]
  - Underdose [Unknown]
